FAERS Safety Report 25992903 (Version 1)
Quarter: 2025Q4

REPORT INFORMATION
  Report Type: Spontaneous
  Country: US (occurrence: US)
  Receive Date: 20251103
  Receipt Date: 20251103
  Transmission Date: 20260118
  Serious: No
  Sender: BRISTOL-MYERS SQUIBB COMPANY
  Company Number: US-BRISTOL-MYERS SQUIBB COMPANY-2025-149127

PATIENT
  Age: 61 Year
  Sex: Female
  Weight: 57.61 kg

DRUGS (3)
  1. ZEPOSIA [Suspect]
     Active Substance: OZANIMOD HYDROCHLORIDE
     Indication: Multiple sclerosis
     Dosage: 0.92 DOSE
     Route: 048
     Dates: start: 20250422
  2. DIAZEPAM [Concomitant]
     Active Substance: DIAZEPAM
     Indication: Muscle spasms
  3. MODAFINIL [Concomitant]
     Active Substance: MODAFINIL
     Indication: Muscle spasms

REACTIONS (1)
  - Lymphocyte count decreased [Unknown]
